FAERS Safety Report 21993167 (Version 1)
Quarter: 2023Q1

REPORT INFORMATION
  Report Type: Spontaneous
  Country: CN (occurrence: CN)
  Receive Date: 20230215
  Receipt Date: 20230215
  Transmission Date: 20230418
  Serious: Yes (Hospitalization, Other)
  Sender: FDA-Public Use
  Company Number: CN-ENDO PHARMACEUTICALS INC-2023-000796

PATIENT
  Age: 38 Year
  Sex: Female

DRUGS (3)
  1. PROPYLTHIOURACIL [Suspect]
     Active Substance: PROPYLTHIOURACIL
     Indication: Hyperthyroidism
     Dosage: 200 MG, DAILY
     Route: 065
     Dates: start: 20210708, end: 20210809
  2. METHIMAZOLE [Concomitant]
     Active Substance: METHIMAZOLE
     Indication: Hyperthyroidism
     Dosage: 30 MG, DAILY
     Route: 065
     Dates: start: 20210528, end: 20210624
  3. PROPANOLOL                         /00030001/ [Concomitant]
     Indication: Hyperthyroidism
     Dosage: 30 MG, DAILY
     Route: 065
     Dates: start: 20210528

REACTIONS (1)
  - Drug reaction with eosinophilia and systemic symptoms [Recovered/Resolved]

NARRATIVE: CASE EVENT DATE: 20210809
